FAERS Safety Report 7676392-7 (Version None)
Quarter: 2011Q3

REPORT INFORMATION
  Report Type: 
  Country: None (occurrence: None)
  Receive Date: 20110811
  Receipt Date: 20110808
  Transmission Date: 20111222
  Serious: Yes (Other)
  Sender: FDA-Public Use
  Company Number: US-PFIZER INC-2011181906

PATIENT
  Sex: Female
  Weight: 100 kg

DRUGS (2)
  1. PRISTIQ [Suspect]
     Indication: PANIC ATTACK
  2. PRISTIQ [Suspect]
     Indication: DEPRESSION
     Dosage: UNKNOWN DOSE, ONCE A DAY
     Route: 048
     Dates: start: 20110701, end: 20110806

REACTIONS (2)
  - DRUG INEFFECTIVE [None]
  - PANIC ATTACK [None]
